FAERS Safety Report 9974830 (Version 1)
Quarter: 2014Q1

REPORT INFORMATION
  Report Type: Report from Study
  Country: US (occurrence: US)
  Receive Date: 20140306
  Receipt Date: 20140306
  Transmission Date: 20141002
  Serious: No
  Sender: FDA-Public Use
  Company Number: US-ABBVIE-13P-163-1159289-00

PATIENT
  Sex: Female
  Weight: 49.03 kg

DRUGS (4)
  1. HUMIRA [Suspect]
     Indication: CROHN^S DISEASE
     Route: 058
     Dates: start: 2011, end: 2012
  2. HUMIRA [Suspect]
     Route: 058
     Dates: start: 2012
  3. EFFEXOR [Concomitant]
     Indication: DEPRESSION
  4. MULTIVITAMIN [Concomitant]
     Indication: PRODUCT USED FOR UNKNOWN INDICATION

REACTIONS (4)
  - Device malfunction [Unknown]
  - Injection site bruising [Not Recovered/Not Resolved]
  - Muscle spasms [Recovering/Resolving]
  - Iron deficiency [Not Recovered/Not Resolved]
